FAERS Safety Report 8297548-9 (Version None)
Quarter: 2012Q2

REPORT INFORMATION
  Report Type: 
  Country: None (occurrence: None)
  Receive Date: 20120419
  Receipt Date: 20120411
  Transmission Date: 20120825
  Serious: Yes (Other)
  Sender: FDA-Public Use
  Company Number: PHHY2012JP027368

PATIENT
  Age: 69 Year
  Sex: Female

DRUGS (1)
  1. FEMARA [Suspect]
     Indication: BREAST CANCER
     Route: 048

REACTIONS (5)
  - PERIPHERAL CIRCULATORY FAILURE [None]
  - PAIN IN EXTREMITY [None]
  - PURPURA [None]
  - THROMBOSIS [None]
  - COLLAGEN DISORDER [None]
